FAERS Safety Report 7577942 (Version 3)
Quarter: 2012Q4

REPORT INFORMATION
  Report Type: Report from Study
  Country: JP (occurrence: JP)
  Receive Date: 20100909
  Receipt Date: 20120924
  Transmission Date: 20130627
  Serious: Yes (Life-Threatening, Other)
  Sender: FDA-Public Use
  Company Number: JP-ROCHE-724322

PATIENT
  Age: 62 Year
  Sex: Male
  Weight: 49 kg

DRUGS (13)
  1. AVASTIN [Suspect]
     Indication: LUNG ADENOCARCINOMA METASTATIC
     Route: 041
     Dates: start: 20100728, end: 20100728
  2. AVASTIN [Suspect]
     Route: 041
     Dates: start: 20100818, end: 20100818
  3. ALIMTA [Concomitant]
     Indication: LUNG ADENOCARCINOMA METASTATIC
     Route: 041
     Dates: start: 20100728, end: 20100728
  4. ALIMTA [Concomitant]
     Route: 041
     Dates: start: 20100818, end: 20100818
  5. MEDICON [Concomitant]
     Indication: COUGH
     Dosage: infusion rate decreased
     Route: 048
  6. LOXONIN [Concomitant]
     Indication: CHEST PAIN
     Dosage: infusion rate decreased
     Route: 048
  7. MUCOSTA [Concomitant]
     Indication: PROPHYLAXIS
     Dosage: infusion rate decreased
     Route: 048
  8. MYSLEE [Concomitant]
     Indication: INSOMNIA
     Dosage: infusion rate decreased
     Route: 048
  9. PANVITAN [Concomitant]
     Indication: PROPHYLAXIS
     Dosage: infusion rate decreased
     Route: 048
  10. ADONA [Concomitant]
     Indication: HAEMOPTYSIS
     Dosage: infusion rate decreased
     Route: 048
  11. OXYCONTIN [Concomitant]
     Indication: CANCER PAIN
     Dosage: infusion rate decreased
     Route: 048
  12. CARBOPLATIN [Concomitant]
     Indication: LUNG ADENOCARCINOMA METASTATIC
     Route: 041
     Dates: start: 20100728, end: 20100728
  13. CARBOPLATIN [Concomitant]
     Route: 041
     Dates: start: 20100818, end: 20100818

REACTIONS (6)
  - Haemoptysis [Recovering/Resolving]
  - Blood pressure decreased [Recovered/Resolved]
  - Depressed level of consciousness [Recovered/Resolved]
  - Heart rate decreased [Recovered/Resolved]
  - Pneumonia [Recovering/Resolving]
  - Neutrophil count decreased [Recovered/Resolved]
